FAERS Safety Report 14368181 (Version 2)
Quarter: 2018Q3

REPORT INFORMATION
  Report Type: Spontaneous
  Country: US (occurrence: US)
  Receive Date: 20180109
  Receipt Date: 20180813
  Transmission Date: 20181010
  Serious: Yes (Hospitalization)
  Sender: FDA-Public Use
  Company Number: US-PFIZER INC-2018009347

PATIENT
  Age: 54 Year
  Sex: Female
  Weight: 49.9 kg

DRUGS (9)
  1. LYRICA [Suspect]
     Active Substance: PREGABALIN
     Indication: NEUROPATHY PERIPHERAL
     Dosage: 150 MG, 2X/DAY
     Dates: start: 201710
  2. DULOXETINE. [Concomitant]
     Active Substance: DULOXETINE
     Indication: DEPRESSION
     Dosage: 30 MG, CAPSULE, BY MOUTH, ONE AT NIGHT
     Route: 048
  3. LEVOTHROID [Concomitant]
     Active Substance: LEVOTHYROXINE SODIUM
     Indication: THYROID DISORDER
     Dosage: 75 MCG, TABLET, ONE TIME A DAY
  4. TRAMADOL HCL [Concomitant]
     Active Substance: TRAMADOL HYDROCHLORIDE
     Indication: BACK PAIN
     Dosage: 50 MG, TABLET, ONCE IN MORNING
  5. ROPINIROLE. [Concomitant]
     Active Substance: ROPINIROLE
     Indication: RESTLESS LEGS SYNDROME
     Dosage: 1 MG, ONCE A DAY AT BEDTIME
  6. DONEPEZIL HCL [Concomitant]
     Active Substance: DONEPEZIL HYDROCHLORIDE
     Indication: DEMENTIA
     Dosage: 5 MG, TABLET, ONE TIME A DAY
  7. LORAZEPAM. [Concomitant]
     Active Substance: LORAZEPAM
     Indication: ANXIETY
     Dosage: 0.5 MG, TABLET, USUALLY ONCE
  8. LYRICA [Suspect]
     Active Substance: PREGABALIN
     Indication: NEURALGIA
     Dosage: 225 MG, 2X/DAY
     Route: 048
     Dates: start: 201710
  9. TYMLOS [Concomitant]
     Active Substance: ABALOPARATIDE
     Indication: OSTEOPOROSIS
     Dosage: UNK
     Dates: start: 201806

REACTIONS (3)
  - Drug intolerance [Recovering/Resolving]
  - Drug ineffective [Not Recovered/Not Resolved]
  - Fatigue [Recovering/Resolving]

NARRATIVE: CASE EVENT DATE: 201710
